FAERS Safety Report 20856005 (Version 1)
Quarter: 2022Q2

REPORT INFORMATION
  Report Type: Spontaneous
  Country: US (occurrence: US)
  Receive Date: 20220520
  Receipt Date: 20220520
  Transmission Date: 20220721
  Serious: Yes (Other)
  Sender: FDA-Public Use
  Company Number: US-BAYER-2022A072100

PATIENT
  Age: 67 Year
  Sex: Male

DRUGS (2)
  1. ASPIRIN [Suspect]
     Active Substance: ASPIRIN
  2. HEPARIN [Suspect]
     Active Substance: HEPARIN SODIUM

REACTIONS (2)
  - Epistaxis [None]
  - Labelled drug-drug interaction medication error [None]
